FAERS Safety Report 5232729-X (Version None)
Quarter: 2007Q1

REPORT INFORMATION
  Report Type: 
  Country: None (occurrence: None)
  Receive Date: 20070207
  Receipt Date: 20070130
  Transmission Date: 20070707
  Serious: Yes (Other)
  Sender: FDA-Public Use
  Company Number: US-AVENTIS-200710684US

PATIENT
  Sex: Male

DRUGS (2)
  1. APIDRA [Suspect]
     Dosage: DOSE: UNK
  2. INSULIN PUMP NOS [Suspect]

REACTIONS (1)
  - DIABETIC KETOACIDOSIS [None]
